FAERS Safety Report 8789700 (Version 2)
Quarter: 2013Q2

REPORT INFORMATION
  Report Type: Spontaneous
  Country: CA (occurrence: None)
  Receive Date: 20120906
  Receipt Date: 20130415
  Transmission Date: 20140414
  Serious: Yes (Hospitalization)
  Sender: FDA-Public Use
  Company Number: CA-009258

PATIENT
  Age: 68 Year
  Sex: Male
  Weight: 79.4 kg

DRUGS (6)
  1. DEGARELIX [Suspect]
     Indication: PROSTATE CANCER
     Route: 058
     Dates: start: 201106
  2. PREDNISONE [Concomitant]
  3. PANTOLOC [Concomitant]
  4. METFORMIN [Concomitant]
  5. CALCIUM [Concomitant]
  6. COVERSYL [Concomitant]

REACTIONS (2)
  - Pain in extremity [None]
  - Osteoarthritis [None]
